FAERS Safety Report 7288393-1 (Version None)
Quarter: 2011Q1

REPORT INFORMATION
  Report Type: 
  Country: None (occurrence: None)
  Receive Date: 20110211
  Receipt Date: 20110209
  Transmission Date: 20110831
  Serious: Yes (Hospitalization)
  Sender: FDA-Public Use
  Company Number: A0789074A

PATIENT
  Age: 59 Year
  Sex: Female
  Weight: 100.9 kg

DRUGS (11)
  1. HYDROXYZINE [Concomitant]
  2. AVANDIA [Suspect]
     Dosage: 4MG PER DAY
     Route: 048
     Dates: start: 20050214, end: 20070501
  3. LAXATIVE [Concomitant]
  4. ALBUTEROL [Concomitant]
  5. SINGULAIR [Concomitant]
  6. AVANDAMET [Suspect]
     Route: 048
  7. OXYGEN [Concomitant]
  8. MUCINEX [Concomitant]
  9. METFORMIN HCL [Concomitant]
  10. ZOLOFT [Concomitant]
  11. PRILOSEC [Concomitant]

REACTIONS (2)
  - MYOCARDIAL INFARCTION [None]
  - ANGINA UNSTABLE [None]
